FAERS Safety Report 6935731-2 (Version None)
Quarter: 2010Q3

REPORT INFORMATION
  Report Type: 
  Country: None (occurrence: None)
  Receive Date: 20100817
  Receipt Date: 20100802
  Transmission Date: 20110219
  Serious: Yes (Death, Other)
  Sender: FDA-Public Use
  Company Number: 2010AP001623

PATIENT
  Age: 41 Year
  Sex: Female

DRUGS (6)
  1. CITALOPRAM HYDROBROMIDE [Suspect]
  2. TRAMADOL HCL [Suspect]
  3. CODEINE (CODEINE0 [Suspect]
  4. DIAZEPAM [Suspect]
  5. IBUPROFEN [Suspect]
  6. NORDAZEPAM (NORDAZEPAM) [Suspect]

REACTIONS (5)
  - BRAIN OEDEMA [None]
  - DRUG INTERACTION [None]
  - DRUG TOXICITY [None]
  - PULMONARY OEDEMA [None]
  - SEROTONIN SYNDROME [None]
